FAERS Safety Report 25473502 (Version 2)
Quarter: 2025Q2

REPORT INFORMATION
  Report Type: Spontaneous
  Country: US (occurrence: US)
  Receive Date: 20250624
  Receipt Date: 20250624
  Transmission Date: 20250717
  Serious: No
  Sender: PFIZER
  Company Number: US-PFIZER INC-PV202500074390

PATIENT
  Sex: Male

DRUGS (2)
  1. ENCORAFENIB [Suspect]
     Active Substance: ENCORAFENIB
  2. CETUXIMAB [Suspect]
     Active Substance: CETUXIMAB

REACTIONS (1)
  - Oedema [Unknown]
